FAERS Safety Report 18815497 (Version 1)
Quarter: 2021Q1

REPORT INFORMATION
  Report Type: Spontaneous
  Country: US (occurrence: US)
  Receive Date: 20210129
  Receipt Date: 20210129
  Transmission Date: 20210419
  Serious: No
  Sender: FDA-Public Use
  Company Number: None

PATIENT
  Age: 86 Year
  Sex: Female
  Weight: 63.6 kg

DRUGS (1)
  1. CASIRIVIMAB AND IMDEVIMAB, 1332MG [Suspect]
     Active Substance: CASIRIVIMAB\IMDEVIMAB
     Indication: COVID-19
     Route: 042

REACTIONS (2)
  - Hypertension [None]
  - Anxiety [None]

NARRATIVE: CASE EVENT DATE: 20210121
